FAERS Safety Report 12650555 (Version 1)
Quarter: 2016Q3

REPORT INFORMATION
  Report Type: Spontaneous
  Country: VE (occurrence: VE)
  Receive Date: 20160815
  Receipt Date: 20160815
  Transmission Date: 20161109
  Serious: Yes (Other)
  Sender: FDA-Public Use
  Company Number: VE-ORION CORPORATION ORION PHARMA-ENTC2016-0449

PATIENT
  Sex: Female

DRUGS (4)
  1. STALEVO [Suspect]
     Active Substance: CARBIDOPA\ENTACAPONE\LEVODOPA
     Dosage: STRENGTH: 100 MG
     Route: 048
  2. MIRAPEX [Concomitant]
     Active Substance: PRAMIPEXOLE DIHYDROCHLORIDE
     Route: 065
  3. STALEVO [Suspect]
     Active Substance: CARBIDOPA\ENTACAPONE\LEVODOPA
     Indication: PARKINSON^S DISEASE
     Dosage: STRENGTH: 150 MG
     Route: 048
  4. STALEVO [Suspect]
     Active Substance: CARBIDOPA\ENTACAPONE\LEVODOPA
     Route: 048

REACTIONS (6)
  - Pulse abnormal [Unknown]
  - Thinking abnormal [Unknown]
  - Disorientation [Unknown]
  - Product supply issue [Unknown]
  - Paralysis [Unknown]
  - Parkinsonian crisis [Unknown]
